FAERS Safety Report 23737645 (Version 8)
Quarter: 2025Q1

REPORT INFORMATION
  Report Type: Spontaneous
  Country: US (occurrence: US)
  Receive Date: 20240412
  Receipt Date: 20250204
  Transmission Date: 20250409
  Serious: Yes (Other)
  Sender: PFIZER
  Company Number: US-PFIZER INC-PV202400047701

PATIENT
  Age: 74 Year
  Sex: Female

DRUGS (5)
  1. BRAFTOVI [Suspect]
     Active Substance: ENCORAFENIB
     Indication: Metastatic malignant melanoma
  2. BRAFTOVI [Suspect]
     Active Substance: ENCORAFENIB
     Dosage: TAKE 5 CAPSULES IN THE MORNING
     Route: 048
     Dates: start: 20240410
  3. BRAFTOVI [Suspect]
     Active Substance: ENCORAFENIB
     Dosage: TAKE 5 CAPSULES IN THE MORNING
     Route: 048
     Dates: start: 20241123
  4. MEKTOVI [Suspect]
     Active Substance: BINIMETINIB
     Indication: Metastatic malignant melanoma
     Dosage: 45 MG, 2X/DAY
     Route: 048
  5. MEKTOVI [Suspect]
     Active Substance: BINIMETINIB
     Dosage: TAKE 3 EACH BY MOUTH TWO TIMES DAILY.
     Route: 048
     Dates: start: 20241123

REACTIONS (3)
  - Colostomy [Unknown]
  - Illness [Unknown]
  - Urinary tract infection [Unknown]
